FAERS Safety Report 15417356 (Version 1)
Quarter: 2018Q3

REPORT INFORMATION
  Report Type: Spontaneous
  Country: US (occurrence: US)
  Receive Date: 20180924
  Receipt Date: 20180924
  Transmission Date: 20181010
  Serious: Yes (Hospitalization, Other)
  Sender: FDA-Public Use
  Company Number: US-ACCORD-072069

PATIENT
  Age: 63 Year
  Sex: Male

DRUGS (5)
  1. FUROSEMIDE. [Suspect]
     Active Substance: FUROSEMIDE
  2. METOPROLOL. [Concomitant]
     Active Substance: METOPROLOL
  3. EZETIMIBE. [Concomitant]
     Active Substance: EZETIMIBE
  4. ALLOPURINOL. [Concomitant]
     Active Substance: ALLOPURINOL
  5. CLOPIDOGREL [Concomitant]
     Active Substance: CLOPIDOGREL BISULFATE

REACTIONS (5)
  - Syncope [Recovered/Resolved]
  - Circulatory collapse [Recovered/Resolved]
  - Injury [Unknown]
  - Urinary incontinence [Recovered/Resolved]
  - Orthostatic hypotension [Recovered/Resolved]
